FAERS Safety Report 9206974 (Version 1)
Quarter: 2013Q2

REPORT INFORMATION
  Report Type: Spontaneous
  Country: US (occurrence: US)
  Receive Date: 20130403
  Receipt Date: 20130403
  Transmission Date: 20140414
  Serious: No
  Sender: FDA-Public Use
  Company Number: US-BAYER-2013-041700

PATIENT
  Age: 71 Year
  Sex: Female

DRUGS (3)
  1. ALEVE TABLET [Suspect]
     Indication: ARTHRITIS
     Dosage: 1 DF, QD
     Route: 048
     Dates: start: 2008
  2. THYROID PILL [Concomitant]
  3. ALLERGY MEDICATION [Concomitant]

REACTIONS (1)
  - Incorrect drug administration duration [None]
